FAERS Safety Report 23362201 (Version 4)
Quarter: 2024Q2

REPORT INFORMATION
  Report Type: Spontaneous
  Country: US (occurrence: US)
  Receive Date: 20240103
  Receipt Date: 20240409
  Transmission Date: 20240716
  Serious: Yes (Other)
  Sender: FDA-Public Use
  Company Number: US-Calliditas-2023CAL01693

PATIENT
  Age: 32 Year
  Sex: Male

DRUGS (3)
  1. TARPEYO [Suspect]
     Active Substance: BUDESONIDE
     Indication: IgA nephropathy
     Route: 048
     Dates: start: 20230714
  2. LISINOPRIL [Concomitant]
     Active Substance: LISINOPRIL
  3. TORSEMIDE [Concomitant]
     Active Substance: TORSEMIDE

REACTIONS (10)
  - Illness [Recovered/Resolved]
  - Proteinuria [Unknown]
  - Prescribed underdose [Recovered/Resolved]
  - Abdominal pain upper [Recovered/Resolved]
  - Abdominal distension [Recovered/Resolved]
  - Ascites [Recovered/Resolved]
  - Genital swelling [Recovered/Resolved]
  - Generalised oedema [Recovered/Resolved]
  - Viral infection [Recovered/Resolved]
  - Weight increased [Recovered/Resolved]

NARRATIVE: CASE EVENT DATE: 20240101
